FAERS Safety Report 25410876 (Version 1)
Quarter: 2025Q2

REPORT INFORMATION
  Report Type: Spontaneous
  Country: US (occurrence: US)
  Receive Date: 20250609
  Receipt Date: 20250609
  Transmission Date: 20250717
  Serious: No
  Sender: AMGEN
  Company Number: US-AMGEN-USASP2025109783

PATIENT
  Sex: Female

DRUGS (1)
  1. REPATHA [Suspect]
     Active Substance: EVOLOCUMAB
     Indication: Blood cholesterol increased
     Dosage: 140 MILLIGRAM, Q2WK, (START DATE: 4-6 MONTHS)
     Route: 058

REACTIONS (5)
  - Muscular weakness [Recovering/Resolving]
  - Pollakiuria [Recovering/Resolving]
  - Urinary incontinence [Recovering/Resolving]
  - Malaise [Unknown]
  - Arthritis [Unknown]
